FAERS Safety Report 6450029-7 (Version None)
Quarter: 2009Q4

REPORT INFORMATION
  Report Type: 
  Country: None (occurrence: None)
  Receive Date: 20091123
  Receipt Date: 20091112
  Transmission Date: 20100525
  Serious: Yes (Death, Hospitalization)
  Sender: FDA-Public Use
  Company Number: JP-JNJFOC-20091106123

PATIENT
  Age: 85 Year
  Sex: Male

DRUGS (4)
  1. CRAVIT [Suspect]
     Indication: PNEUMONIA
     Route: 048
     Dates: start: 20090801
  2. PHENOBARBITAL TAB [Concomitant]
     Route: 065
     Dates: start: 20090801
  3. DEPAKENE [Concomitant]
     Route: 065
     Dates: start: 20090801
  4. CERCINE [Concomitant]
     Route: 065
     Dates: start: 20090801

REACTIONS (2)
  - CEREBROVASCULAR ACCIDENT [None]
  - STATUS EPILEPTICUS [None]
